FAERS Safety Report 7266868-9 (Version None)
Quarter: 2011Q1

REPORT INFORMATION
  Report Type: 
  Country: None (occurrence: None)
  Receive Date: 20110121
  Receipt Date: 20110118
  Transmission Date: 20110831
  Serious: Yes (Hospitalization, Other)
  Sender: FDA-Public Use
  Company Number: 20119917

PATIENT
  Age: 16 Year
  Sex: Male

DRUGS (1)
  1. LIORESAL [Suspect]
     Indication: MUSCLE SPASTICITY
     Dosage: DAILY, INTRATHECAL
     Route: 037

REACTIONS (9)
  - IRRITABILITY [None]
  - ATELECTASIS [None]
  - DRUG WITHDRAWAL SYNDROME [None]
  - CLONUS [None]
  - PYREXIA [None]
  - URINARY RETENTION [None]
  - RESPIRATORY DISTRESS [None]
  - TREMOR [None]
  - MEDICAL DEVICE COMPLICATION [None]
